FAERS Safety Report 4705557-9 (Version None)
Quarter: 2005Q2

REPORT INFORMATION
  Report Type: 
  Country: None (occurrence: None)
  Receive Date: 20050629
  Receipt Date: 20050218
  Transmission Date: 20051028
  Serious: Yes (Hospitalization)
  Sender: FDA-Public Use
  Company Number: 200412878FR

PATIENT
  Age: 58 Year
  Sex: Female
  Weight: 68 kg

DRUGS (6)
  1. UNFRACTIONATED HEPARIN SOLUTION FOR INJECTION [Suspect]
     Dosage: QD IV
     Route: 042
     Dates: start: 20040723, end: 20040723
  2. KARDEGIC [Concomitant]
  3. PLAVIX [Concomitant]
  4. SECTRAL [Concomitant]
  5. ELISOR [Concomitant]
  6. INTEGRILIN [Concomitant]

REACTIONS (5)
  - ARTERIAL DISORDER [None]
  - FISTULA [None]
  - HAEMATOMA [None]
  - POST PROCEDURAL COMPLICATION [None]
  - VASCULAR PSEUDOANEURYSM [None]
